FAERS Safety Report 7741189-6 (Version None)
Quarter: 2011Q3

REPORT INFORMATION
  Report Type: 
  Country: None (occurrence: None)
  Receive Date: 20110909
  Receipt Date: 20110829
  Transmission Date: 20111222
  Serious: Yes (Other)
  Sender: FDA-Public Use
  Company Number: CA-ELI_LILLY_AND_COMPANY-CA201108008411

PATIENT
  Sex: Male
  Weight: 100 kg

DRUGS (19)
  1. IMOVANE [Concomitant]
  2. SEROQUEL [Concomitant]
  3. ZYPREXA [Suspect]
     Indication: BIPOLAR DISORDER
     Dosage: 7.5 MG, EACH EVENING
  4. CLONAZEPAM [Concomitant]
  5. LITHIUM CARBONATE [Concomitant]
  6. RHOVANE [Concomitant]
  7. ZOLOFT [Concomitant]
  8. ZYPREXA ZYDIS [Suspect]
     Dosage: 10 MG, EACH EVENING
  9. ZYPREXA [Suspect]
     Dosage: 15 MG, EACH EVENING
  10. RISPERDAL [Concomitant]
  11. ZYPREXA [Suspect]
     Dosage: 2.5 MG, EACH EVENING
  12. ZYPREXA ZYDIS [Suspect]
     Indication: BIPOLAR DISORDER
     Dosage: 5 MG, QD
  13. ZYPREXA ZYDIS [Suspect]
     Dosage: 20 MG, EACH EVENING
  14. BENZTROPINE MESYLATE [Concomitant]
  15. MOCLOBEMIDE [Concomitant]
  16. ZYPREXA [Suspect]
     Dosage: 5 MG, EACH EVENING
  17. LOXAPINE HCL [Concomitant]
  18. TRAZODONE HCL [Concomitant]
  19. FLUANXOL [Concomitant]

REACTIONS (12)
  - HYPERGLYCAEMIA [None]
  - HYPOAESTHESIA [None]
  - TACHYCARDIA [None]
  - WEIGHT INCREASED [None]
  - LIPIDS ABNORMAL [None]
  - HAEMOGLOBIN DECREASED [None]
  - WHITE BLOOD CELL COUNT INCREASED [None]
  - DIABETIC KETOACIDOSIS [None]
  - TYPE 1 DIABETES MELLITUS [None]
  - BLOOD PRESSURE INCREASED [None]
  - HAEMATOCRIT DECREASED [None]
  - LIVER FUNCTION TEST ABNORMAL [None]
